FAERS Safety Report 6504805-2 (Version None)
Quarter: 2009Q4

REPORT INFORMATION
  Report Type: 
  Country: None (occurrence: None)
  Receive Date: 20091216
  Receipt Date: 20091213
  Transmission Date: 20100525
  Serious: Yes (Hospitalization, Other)
  Sender: FDA-Public Use
  Company Number: AE-2009-298

PATIENT
  Age: 71 Year
  Sex: Female

DRUGS (11)
  1. METFORMIN HCL [Suspect]
     Dosage: 1GMBID
  2. GLICLAZIDE [Suspect]
     Dosage: 60MGBID
  3. ALCOHOL [Suspect]
  4. ALLOPURINOL [Concomitant]
  5. ATENOLOL [Concomitant]
  6. BENDROFLUMETHIAZIDE [Concomitant]
  7. CLOPIDOGREL [Concomitant]
  8. DOXAZOSIN [Concomitant]
  9. IRBESARTAN [Concomitant]
  10. PERINDOPRIL ERBUMINE [Concomitant]
  11. ASPIRIN [Concomitant]

REACTIONS (8)
  - ALCOHOL USE [None]
  - COMA [None]
  - DRUG INTERACTION [None]
  - FALL [None]
  - HYPOGLYCAEMIA [None]
  - HYPOTHERMIA [None]
  - LACTIC ACIDOSIS [None]
  - RENAL FAILURE ACUTE [None]
